FAERS Safety Report 8534270-5 (Version None)
Quarter: 2012Q3

REPORT INFORMATION
  Report Type: 
  Country: None (occurrence: None)
  Receive Date: 20120724
  Receipt Date: 20120625
  Transmission Date: 20120928
  Serious: No
  Sender: FDA-Public Use
  Company Number: US-ASTRAZENECA-2012SE43163

PATIENT
  Sex: Male

DRUGS (8)
  1. IRON [Concomitant]
     Route: 048
  2. PHAZYME [Concomitant]
     Route: 048
  3. WARFARIN SODIUM [Suspect]
     Route: 048
  4. ALLOPURINOL [Concomitant]
     Route: 048
  5. BENAZEPRIL HYDROCHLORIDE [Concomitant]
     Route: 048
  6. PENTOTHAL [Concomitant]
     Route: 048
  7. NEXIUM [Suspect]
     Route: 048
  8. PRILOSEC [Suspect]
     Route: 048

REACTIONS (5)
  - BLOOD PRESSURE ABNORMAL [None]
  - ADVERSE EVENT [None]
  - GOUT [None]
  - FLATULENCE [None]
  - CARDIAC DISORDER [None]
